FAERS Safety Report 22910144 (Version 4)
Quarter: 2023Q4

REPORT INFORMATION
  Report Type: Spontaneous
  Country: JP (occurrence: JP)
  Receive Date: 20230906
  Receipt Date: 20231024
  Transmission Date: 20240110
  Serious: Yes (Hospitalization, Other)
  Sender: FDA-Public Use
  Company Number: JP-AMGEN-JPNSP2023153876

PATIENT
  Age: 54 Year
  Sex: Male

DRUGS (4)
  1. OTEZLA [Suspect]
     Active Substance: APREMILAST
     Indication: Psoriasis
     Dosage: 30 MILLIGRAM, BID
     Route: 048
     Dates: start: 201708, end: 20230822
  2. OTEZLA [Suspect]
     Active Substance: APREMILAST
     Dosage: 30 MILLIGRAM, QD
     Route: 048
     Dates: start: 20230823
  3. BETAMETHASONE\CALCIPOTRIENE [Suspect]
     Active Substance: BETAMETHASONE\CALCIPOTRIENE
     Indication: Product used for unknown indication
     Dosage: UNK
     Route: 061
  4. OXAROL [Concomitant]
     Active Substance: MAXACALCITOL
     Dosage: UNK
     Route: 065

REACTIONS (4)
  - Malignant melanoma [Unknown]
  - Dysplastic naevus [Not Recovered/Not Resolved]
  - Off label use [Unknown]
  - Skin atrophy [Unknown]

NARRATIVE: CASE EVENT DATE: 20230510
